FAERS Safety Report 9315767 (Version 2)
Quarter: 2013Q3

REPORT INFORMATION
  Report Type: Report from Study
  Country: CA (occurrence: CA)
  Receive Date: 20130529
  Receipt Date: 20130823
  Transmission Date: 20140515
  Serious: Yes (Other)
  Sender: FDA-Public Use
  Company Number: CA-UCBSA-068295

PATIENT
  Age: 84 Year
  Sex: Female
  Weight: 76.4 kg

DRUGS (17)
  1. CIMZIA [Suspect]
     Indication: RHEUMATOID ARTHRITIS
     Route: 058
     Dates: end: 20130514
  2. LASIX [Suspect]
     Indication: PLEURAL EFFUSION
     Dosage: 2 OR 3
     Route: 048
     Dates: start: 20130515, end: 20130517
  3. ATENOL [Concomitant]
     Indication: BLOOD PRESSURE
  4. FOLIC ACID [Concomitant]
  5. OMEPRAZOLE [Concomitant]
     Dosage: EVERY MORNING
  6. MTX [Concomitant]
     Indication: RHEUMATOID ARTHRITIS
     Route: 048
     Dates: start: 2008
  7. FOSAVANCE [Concomitant]
  8. WARFARIN [Concomitant]
     Indication: CARDIAC VALVE DISEASE
     Dosage: DOSAGE:AS PER BLOOD WORK,FROM 10YEARS
  9. WATERPILL HYDROCHLOROTHIAZIDE [Concomitant]
     Dosage: STRENGTH: 2.5MG,1/2TAB
  10. HYDROMORPHONE [Concomitant]
     Indication: PAIN
     Dosage: NOT TAKEN FOR A WHILE, SINCE ON CIMZIA 1-6 MG AS NECESSARY
  11. FERROUS FUMERATE [Concomitant]
  12. CALCIUM WITH ZINC [Concomitant]
     Dosage: AS NEEDED
  13. VITAMIN C [Concomitant]
     Dosage: AS NEEDED
  14. TRAZADONE [Concomitant]
     Indication: SLEEP DISORDER
     Dosage: EVERY NIGHT, SOME TIME SKIPS
  15. FUROSEMIDE [Concomitant]
     Indication: PULMONARY OEDEMA
     Dosage: 40 MG ONCE DAILY FOR ONE WEEK
     Dates: start: 201305
  16. CELEBREX [Concomitant]
  17. LOSEC [Concomitant]

REACTIONS (13)
  - Upper respiratory tract infection [Recovered/Resolved]
  - Pleural effusion [Not Recovered/Not Resolved]
  - Dizziness [Recovered/Resolved]
  - Fall [Recovered/Resolved]
  - Asthenia [Recovered/Resolved]
  - Cough [Recovered/Resolved]
  - Nasopharyngitis [Not Recovered/Not Resolved]
  - Back pain [Not Recovered/Not Resolved]
  - Fatigue [Unknown]
  - Limb injury [Unknown]
  - Haemorrhage [Unknown]
  - Lip injury [Unknown]
  - Musculoskeletal chest pain [Unknown]
